FAERS Safety Report 24755942 (Version 2)
Quarter: 2024Q4

REPORT INFORMATION
  Report Type: Spontaneous
  Country: US (occurrence: US)
  Receive Date: 20241219
  Receipt Date: 20241224
  Transmission Date: 20250115
  Serious: No
  Sender: APELLIS PHARMACEUTICALS
  Company Number: US-APELLIS-2024-APL-0001658

PATIENT

DRUGS (2)
  1. SYFOVRE [Suspect]
     Active Substance: PEGCETACOPLAN
     Indication: Dry age-related macular degeneration
     Dosage: INJECTION IN BOTH EYES FOR 6 MONTHS
  2. SYFOVRE [Suspect]
     Active Substance: PEGCETACOPLAN
     Dosage: UNKNOWN
     Route: 031

REACTIONS (8)
  - Vision blurred [Not Recovered/Not Resolved]
  - Eye inflammation [Recovering/Resolving]
  - Eye pain [Recovering/Resolving]
  - Photophobia [Not Recovered/Not Resolved]
  - Vitreous floaters [Recovering/Resolving]
  - Photopsia [Recovered/Resolved]
  - Stress at work [Not Recovered/Not Resolved]
  - Visual impairment [Unknown]

NARRATIVE: CASE EVENT DATE: 20241205
